FAERS Safety Report 8476423-0 (Version None)
Quarter: 2012Q2

REPORT INFORMATION
  Report Type: 
  Country: None (occurrence: None)
  Receive Date: 20120628
  Receipt Date: 20120622
  Transmission Date: 20120825
  Serious: Yes (Congenital Anomaly, Other)
  Sender: FDA-Public Use
  Company Number: GXKR2012DE002054

PATIENT

DRUGS (8)
  1. DEXAMETHASONE [Concomitant]
     Dosage: MATERNAL DOSE: 80 MG/D (2X40)
     Route: 064
  2. OMEPRAZOLE [Suspect]
     Dosage: MATERNAL DOSE: 20 MG/D FROM 18.-32.3 GW
     Route: 064
  3. PREDNISONE TAB [Concomitant]
     Dosage: MATERNAL DOSE: 40 MG/D (UP TO 20)/ CHANGING DOSAGE BETWEEN 20, 35 OR 40 MG/D
     Route: 064
  4. PROTAPHAN [Concomitant]
     Dosage: MATERNAL DOSE: 20 [IE/D (BIS 6) ]/ SINCE MARCH, THE 4TH 20 IE/D (10-0-10), BEFORE THAT 6-0-0 IE/D
     Route: 064
  5. FOLIC ACID [Concomitant]
     Dosage: MATERNAL DOSE: 0.4 MG/D
     Route: 064
  6. PLASMA PROTEIN FRACTION (HUMAN) [Suspect]
     Dosage: MATERNAL DOSE: UKN
     Route: 064
  7. PREDNISONE TAB [Concomitant]
     Dosage: MATERNAL DOSE: UKN
     Route: 064
  8. RITUXIMAB [Suspect]
     Dosage: MATERNAL DOSE: 800 [MG/D ]/ ON 24JAN 800MG, THE OTHER 3 TIMES 700MG (GW 14+5 TO 15+2)
     Route: 064

REACTIONS (4)
  - B-LYMPHOCYTE COUNT DECREASED [None]
  - NEONATAL RESPIRATORY DISTRESS SYNDROME [None]
  - VENTRICULAR SEPTAL DEFECT [None]
  - FOETAL EXPOSURE DURING PREGNANCY [None]
